FAERS Safety Report 5951934-8 (Version None)
Quarter: 2008Q4

REPORT INFORMATION
  Report Type: 
  Country: None (occurrence: None)
  Receive Date: 20081113
  Receipt Date: 20071218
  Transmission Date: 20090506
  Serious: No
  Sender: FDA-Public Use
  Company Number: A0626749A

PATIENT
  Age: 85 Year
  Sex: Male

DRUGS (10)
  1. COREG [Suspect]
     Dosage: 6.25MG TWICE PER DAY
     Route: 048
     Dates: start: 20060915, end: 20071031
  2. COREG CR [Suspect]
     Dosage: 40MG PER DAY
     Route: 048
     Dates: start: 20071101
  3. WARFARIN SODIUM [Concomitant]
  4. FUROSEMIDE [Concomitant]
  5. LOTREL [Concomitant]
  6. ARMOUR THYROID [Concomitant]
  7. LESCOL [Concomitant]
  8. POTASSIUM CHLORIDE [Concomitant]
  9. CILOSTAZOL [Concomitant]
  10. ATIVAN [Concomitant]

REACTIONS (3)
  - LETHARGY [None]
  - NIGHTMARE [None]
  - WEIGHT INCREASED [None]
